FAERS Safety Report 12499570 (Version 2)
Quarter: 2016Q3

REPORT INFORMATION
  Report Type: Spontaneous
  Country: DE (occurrence: DE)
  Receive Date: 20160627
  Receipt Date: 20160711
  Transmission Date: 20161109
  Serious: Yes (Life-Threatening, Hospitalization, Other)
  Sender: FDA-Public Use
  Company Number: DE-PFIZER INC-2016249019

PATIENT
  Age: 5 Month
  Sex: Female
  Weight: 1.5 kg

DRUGS (17)
  1. NITRIC OXIDE. [Concomitant]
     Active Substance: NITRIC OXIDE
     Dosage: UNK
     Route: 055
     Dates: start: 20160425, end: 20160506
  2. BOSENTAN. [Concomitant]
     Active Substance: BOSENTAN
     Dosage: 1 MG/KG, 2X/DAY
     Route: 048
  3. MIDAZOLAM [Concomitant]
     Active Substance: MIDAZOLAM\MIDAZOLAM HYDROCHLORIDE
     Dosage: APPROXIMATELY 0.2 MG/KG/H
     Dates: start: 20160425, end: 20160515
  4. MEROPENEM. [Concomitant]
     Active Substance: MEROPENEM
     Dosage: 15 MG/KG, 3X/DAY
  5. CHLORALHYDRAT [Concomitant]
  6. REVATIO [Suspect]
     Active Substance: SILDENAFIL CITRATE
     Indication: PULMONARY ARTERIAL HYPERTENSION
     Dosage: 0.06 MG/KG, UNK
     Route: 041
     Dates: start: 20160501, end: 20160505
  7. ADRENALIN [Concomitant]
     Active Substance: EPINEPHRINE
     Dosage: APPROXIMATLEY 0.2 UG/KG/MIN
     Route: 041
     Dates: start: 20160426, end: 20160513
  8. DOPAMINE [Concomitant]
     Active Substance: DOPAMINE\DOPAMINE HYDROCHLORIDE
     Dosage: APPROXIMATELY 4 UG/KG/MIN
     Dates: start: 20160425, end: 20160506
  9. VECURONIUM [Concomitant]
     Active Substance: VECURONIUM BROMIDE
     Dosage: APPROXIMATELY 0.15 UG/KG/H
     Route: 041
     Dates: start: 20160425, end: 20160511
  10. HCT [Concomitant]
     Active Substance: HYDROCHLOROTHIAZIDE
  11. ILOMEDIN [Concomitant]
     Active Substance: ILOPROST
     Dosage: 6 HOURS DAILY
     Route: 042
     Dates: start: 20160430, end: 20160502
  12. PHENOBARBITAL. [Concomitant]
     Active Substance: PHENOBARBITAL
  13. MORPHIN [Concomitant]
     Active Substance: MORPHINE
     Dosage: APPROXIMATELY 20 UG/KG/H
     Route: 041
     Dates: start: 20160425, end: 20160512
  14. VANCOMYCIN [Concomitant]
     Active Substance: VANCOMYCIN
     Dosage: 10 MG/KG, 2X/DAY
  15. ILOMEDIN [Concomitant]
     Active Substance: ILOPROST
     Dosage: 12 X 1 UG DAILY
     Route: 055
     Dates: start: 20160430
  16. SPIRONOLACTONE. [Concomitant]
     Active Substance: SPIRONOLACTONE
  17. MILRINON [Concomitant]
     Dosage: 0.375-0.75 UG/KG/MIN

REACTIONS (2)
  - Product use issue [Recovered/Resolved]
  - Hypotension [Recovered/Resolved]

NARRATIVE: CASE EVENT DATE: 201605
